FAERS Safety Report 15675988 (Version 1)
Quarter: 2018Q4

REPORT INFORMATION
  Report Type: Spontaneous
  Country: US (occurrence: US)
  Receive Date: 20181130
  Receipt Date: 20181130
  Transmission Date: 20190205
  Serious: No
  Sender: FDA-Public Use
  Company Number: US-PFIZER INC-2018480580

PATIENT
  Age: 74 Year
  Sex: Male

DRUGS (3)
  1. LYRICA [Suspect]
     Active Substance: PREGABALIN
     Indication: DEPRESSION
  2. LYRICA [Suspect]
     Active Substance: PREGABALIN
     Indication: ANXIETY
  3. LYRICA [Suspect]
     Active Substance: PREGABALIN
     Indication: NEUROPATHY PERIPHERAL
     Dosage: 600 MG, DAILY

REACTIONS (5)
  - Apathy [Unknown]
  - Drug ineffective [Unknown]
  - Overdose [Unknown]
  - Drug effective for unapproved indication [Unknown]
  - Depression [Unknown]
